FAERS Safety Report 11054075 (Version 3)
Quarter: 2016Q3

REPORT INFORMATION
  Report Type: Spontaneous
  Country: CA (occurrence: CA)
  Receive Date: 20150422
  Receipt Date: 20160706
  Transmission Date: 20161109
  Serious: Yes (Hospitalization, Other)
  Sender: FDA-Public Use
  Company Number: CA-ROCHE-1426946

PATIENT
  Sex: Female

DRUGS (7)
  1. XOLAIR [Suspect]
     Active Substance: OMALIZUMAB
     Indication: ASTHMA
     Route: 058
     Dates: start: 20060908
  2. AVAMYS [Concomitant]
     Active Substance: FLUTICASONE FUROATE
  3. SYNTHROID [Concomitant]
     Active Substance: LEVOTHYROXINE SODIUM
  4. SINGULAIR [Concomitant]
     Active Substance: MONTELUKAST SODIUM
  5. XOLAIR [Suspect]
     Active Substance: OMALIZUMAB
     Route: 058
     Dates: start: 20150402
  6. DEXILANT [Concomitant]
     Active Substance: DEXLANSOPRAZOLE
  7. VENTOLINE [Concomitant]
     Active Substance: ALBUTEROL

REACTIONS (11)
  - Hypercalcaemia [Unknown]
  - Nasopharyngitis [Unknown]
  - Hypoglycaemia [Unknown]
  - Hyperthyroidism [Unknown]
  - Weight decreased [Unknown]
  - Papillary thyroid cancer [Unknown]
  - Asthenia [Unknown]
  - Presyncope [Unknown]
  - Hypocalcaemia [Recovering/Resolving]
  - Malaise [Unknown]
  - Insomnia [Unknown]
